FAERS Safety Report 24288651 (Version 5)
Quarter: 2024Q4

REPORT INFORMATION
  Report Type: Spontaneous
  Country: PL (occurrence: PL)
  Receive Date: 20240906
  Receipt Date: 20241115
  Transmission Date: 20250115
  Serious: Yes (Congenital Anomaly, Other)
  Sender: GLAXOSMITHKLINE
  Company Number: None

PATIENT

DRUGS (18)
  1. DIAZEPAM [Suspect]
     Active Substance: DIAZEPAM
     Indication: Maternal exposure timing unspecified
     Dosage: 10 MG (10 MG OF DIAZEPAM IN BOLUS)
     Route: 064
  2. DIAZEPAM [Suspect]
     Active Substance: DIAZEPAM
     Indication: Status epilepticus
  3. LAMOTRIGINE [Suspect]
     Active Substance: LAMOTRIGINE
     Indication: Maternal exposure timing unspecified
     Dosage: 100 MG, BID (2 ? 100 MG)
     Route: 064
  4. LAMOTRIGINE [Suspect]
     Active Substance: LAMOTRIGINE
     Indication: Epilepsy
     Dosage: 250 MG, BID (2 ? 250 MG)
     Route: 064
  5. LACOSAMIDE [Suspect]
     Active Substance: LACOSAMIDE
     Indication: Maternal exposure timing unspecified
     Dosage: 200 MG, BID (2 ? 200 MG)
     Route: 064
  6. LACOSAMIDE [Suspect]
     Active Substance: LACOSAMIDE
     Indication: Epilepsy
  7. BUSPIRONE [Suspect]
     Active Substance: BUSPIRONE HYDROCHLORIDE
     Indication: Maternal exposure timing unspecified
     Dosage: UNK
     Route: 064
  8. BUSPIRONE [Suspect]
     Active Substance: BUSPIRONE HYDROCHLORIDE
     Indication: Anxiety
  9. BUSPIRONE [Suspect]
     Active Substance: BUSPIRONE HYDROCHLORIDE
     Indication: Depression
  10. RISPERDAL [Suspect]
     Active Substance: RISPERIDONE
     Indication: Maternal exposure timing unspecified
     Dosage: UNK
     Route: 064
  11. RISPERDAL [Suspect]
     Active Substance: RISPERIDONE
     Indication: Depression
  12. RISPERDAL [Suspect]
     Active Substance: RISPERIDONE
     Indication: Anxiety
  13. TRAZODONE [Suspect]
     Active Substance: TRAZODONE HYDROCHLORIDE
     Indication: Maternal exposure timing unspecified
     Dosage: UNK
     Route: 064
  14. TRAZODONE [Suspect]
     Active Substance: TRAZODONE HYDROCHLORIDE
     Indication: Anxiety
  15. TRAZODONE [Suspect]
     Active Substance: TRAZODONE HYDROCHLORIDE
     Indication: Depression
  16. LEVETIRACETAM [Suspect]
     Active Substance: LEVETIRACETAM
     Indication: Maternal exposure timing unspecified
     Dosage: 3250 MG
     Route: 064
  17. LEVETIRACETAM [Suspect]
     Active Substance: LEVETIRACETAM
     Indication: Epilepsy
     Dosage: 1500 MG, BID (2 ? 1,500 MG)
     Route: 064
  18. LEVETIRACETAM [Suspect]
     Active Substance: LEVETIRACETAM
     Indication: Status epilepticus

REACTIONS (5)
  - Low birth weight baby [Unknown]
  - Karyotype analysis abnormal [Unknown]
  - Premature baby [Unknown]
  - Congenital anomaly [Unknown]
  - Foetal exposure during pregnancy [Unknown]
